FAERS Safety Report 25542647 (Version 1)
Quarter: 2025Q3

REPORT INFORMATION
  Report Type: Spontaneous
  Country: EU (occurrence: EU)
  Receive Date: 20250711
  Receipt Date: 20250711
  Transmission Date: 20251021
  Serious: Yes (Hospitalization)
  Sender: RANBAXY
  Company Number: EU-AFSSAPS-CN2025000331

PATIENT
  Age: 69 Year
  Sex: Male
  Weight: 64 kg

DRUGS (14)
  1. OLANZAPINE [Suspect]
     Active Substance: OLANZAPINE
     Indication: Acute psychosis
     Dosage: 20 MILLIGRAM, DAILY
     Route: 048
     Dates: start: 20250311, end: 20250313
  2. OLANZAPINE [Suspect]
     Active Substance: OLANZAPINE
     Dosage: 30 MILLIGRAM, DAILY
     Route: 048
     Dates: start: 20250313, end: 20250316
  3. OLANZAPINE [Suspect]
     Active Substance: OLANZAPINE
     Dosage: 20 MILLIGRAM, DAILY
     Route: 048
     Dates: start: 20250316, end: 20250316
  4. RISPERIDONE [Suspect]
     Active Substance: RISPERIDONE
     Indication: Acute psychosis
     Dosage: 2 MILLIGRAM, DAILY
     Route: 048
     Dates: start: 20250306, end: 20250310
  5. RISPERIDONE [Suspect]
     Active Substance: RISPERIDONE
     Dosage: 4 MILLIGRAM, DAILY
     Route: 048
     Dates: start: 20250310, end: 20250311
  6. CYAMEMAZINE [Suspect]
     Active Substance: CYAMEMAZINE
     Indication: Acute psychosis
     Dosage: 90 MILLIGRAM, DAILY, 30MG 3 TIMES A DAY
     Route: 048
     Dates: start: 20250306, end: 20250313
  7. CYAMEMAZINE [Suspect]
     Active Substance: CYAMEMAZINE
     Dosage: 150 MILLIGRAM, DAILY, 50MG 3 TIMES A DAY
     Route: 048
     Dates: start: 20250313, end: 20250316
  8. CYAMEMAZINE [Suspect]
     Active Substance: CYAMEMAZINE
     Dosage: 75 MILLIGRAM, DAILY, 75 MILLIGRAM, DAILY, 25MG 3 TIMES A DAY
     Route: 048
     Dates: start: 20250316, end: 20250317
  9. LOXAPINE [Suspect]
     Active Substance: LOXAPINE
     Indication: Acute psychosis
     Dosage: 150 MILLIGRAM, DAILY, 50MG 3 TIMES A DAY
     Route: 048
     Dates: start: 20250303, end: 20250306
  10. DIAZEPAM [Concomitant]
     Active Substance: DIAZEPAM
     Indication: Acute psychosis
     Dosage: 15 MILLIGRAM, DAILY, 5MG 3 TIMES A DAY
     Route: 048
     Dates: start: 20250314, end: 20250316
  11. DIAZEPAM [Concomitant]
     Active Substance: DIAZEPAM
     Dosage: 10 MILLIGRAM, DAILY, 5MG TWICE A DAY
     Route: 048
     Dates: start: 20250316
  12. ELIQUIS [Concomitant]
     Active Substance: APIXABAN
     Indication: Deep vein thrombosis
     Dosage: 20 MILLIGRAM, DAILY, 10MG IN THE MORNING AND EVENING
     Route: 048
     Dates: start: 20250314
  13. AMLODIPINE [Concomitant]
     Active Substance: AMLODIPINE BESYLATE
     Indication: Hypertension
     Dosage: 5 MILLIGRAM, DAILY
     Route: 048
  14. METHADONE [Concomitant]
     Active Substance: METHADONE HYDROCHLORIDE
     Indication: Drug dependence
     Dosage: 45 MILLIGRAM, DAILY
     Route: 048

REACTIONS (1)
  - Neuroleptic malignant syndrome [Recovering/Resolving]

NARRATIVE: CASE EVENT DATE: 20250314
